FAERS Safety Report 9887460 (Version 3)
Quarter: 2014Q1

REPORT INFORMATION
  Report Type: Spontaneous
  Country: JP (occurrence: None)
  Receive Date: 20140206
  Receipt Date: 20140311
  Transmission Date: 20141002
  Serious: Yes (Hospitalization)
  Sender: FDA-Public Use
  Company Number: JP-014554

PATIENT
  Age: 83 Year
  Sex: Male
  Weight: 61 kg

DRUGS (9)
  1. DEGARELIX [Suspect]
     Indication: PROSTATE CANCER
     Route: 058
     Dates: start: 20130924, end: 20130924
  2. PREDONINE [Suspect]
     Indication: RENAL FAILURE ACUTE
     Route: 048
     Dates: start: 20140110, end: 20140123
  3. CASODEX [Concomitant]
  4. OLMETEC [Concomitant]
  5. HERBESSER [Concomitant]
  6. DENOSUMAB [Concomitant]
  7. RECOMODULIN [Concomitant]
  8. CALCIUM CARBONATE [Concomitant]
  9. CORTICOSTEROID NOS [Concomitant]

REACTIONS (23)
  - Malaise [None]
  - Pyrexia [None]
  - Blood pressure decreased [None]
  - Fungaemia [None]
  - Immunosuppression [None]
  - Therapy change [None]
  - Movement disorder [None]
  - Prothrombin time prolonged [None]
  - Activated partial thromboplastin time prolonged [None]
  - Choking sensation [None]
  - Septic shock [None]
  - Platelet count decreased [None]
  - Disseminated intravascular coagulation [None]
  - Hypocalcaemia [None]
  - Pneumonia [None]
  - Chest X-ray abnormal [None]
  - Chest pain [None]
  - Electrocardiogram ST segment depression [None]
  - Prinzmetal angina [None]
  - Activities of daily living impaired [None]
  - Candida sepsis [None]
  - Eating disorder [None]
  - Renal failure acute [None]
